FAERS Safety Report 10237852 (Version 1)
Quarter: 2014Q2

REPORT INFORMATION
  Report Type: Spontaneous
  Country: BR (occurrence: BR)
  Receive Date: 20140616
  Receipt Date: 20140616
  Transmission Date: 20141212
  Serious: Yes (Other)
  Sender: FDA-Public Use
  Company Number: BR-BIOGENIDEC-2014BI056592

PATIENT
  Age: 44 Year
  Sex: Male

DRUGS (5)
  1. AVONEX [Suspect]
     Indication: MULTIPLE SCLEROSIS
     Route: 030
     Dates: start: 20051015, end: 20121104
  2. AVONEX [Suspect]
     Indication: MULTIPLE SCLEROSIS
     Route: 030
     Dates: start: 20121111
  3. VALPAKINE (SODIUM VALPROATE) [Concomitant]
  4. RIVOTRIL [Concomitant]
     Indication: ANXIETY
  5. VITAMIN D [Concomitant]

REACTIONS (3)
  - Skin cancer [Not Recovered/Not Resolved]
  - Mass [Not Recovered/Not Resolved]
  - Injection site reaction [Not Recovered/Not Resolved]
